FAERS Safety Report 21182427 (Version 2)
Quarter: 2022Q4

REPORT INFORMATION
  Report Type: Spontaneous
  Country: CH (occurrence: CH)
  Receive Date: 20220807
  Receipt Date: 20221020
  Transmission Date: 20230112
  Serious: Yes (Other)
  Sender: FDA-Public Use
  Company Number: CH-CELGENE-151-21880-14044686

PATIENT
  Age: 42 Year
  Sex: Female
  Weight: 88 kg

DRUGS (9)
  1. REVLIMID [Suspect]
     Active Substance: LENALIDOMIDE
     Indication: Accidental exposure to product
     Dosage: FREQUENCY TEXT: NOT APPLICABLE
     Route: 065
  2. THALIDOMIDE [Suspect]
     Active Substance: THALIDOMIDE
     Indication: Accidental exposure to product
     Dosage: FREQUENCY TEXT: NOT PROVIDED
     Route: 065
  3. POMALIDOMIDE [Suspect]
     Active Substance: POMALIDOMIDE
     Indication: Accidental exposure to product
     Dosage: FREQUENCY TEXT: NOT PROVIDED
     Route: 065
  4. MONUROL [Concomitant]
     Active Substance: FOSFOMYCIN TROMETHAMINE
     Indication: Urinary tract infection
     Dosage: FREQUENCY TEXT: NOT PROVIDED
     Route: 065
     Dates: start: 201403, end: 201403
  5. Dafnegil [Concomitant]
     Indication: Fungal infection
     Dosage: FREQUENCY TEXT: NOT PROVIDED
     Route: 065
     Dates: start: 201405
  6. CEFUROXIME [Concomitant]
     Active Substance: CEFUROXIME
     Indication: Synovial cyst
     Dosage: FREQUENCY TEXT: NOT PROVIDED
     Route: 065
     Dates: start: 201405
  7. gyno-canesten combi pack [Concomitant]
     Indication: Fungal infection
     Dosage: FREQUENCY TEXT: NOT PROVIDED
     Route: 065
     Dates: start: 201409
  8. CORTISOL [Concomitant]
     Active Substance: HYDROCORTISONE
     Indication: Fungal infection
     Dosage: FREQUENCY TEXT: NOT PROVIDED
     Route: 065
     Dates: start: 201403
  9. FLAGYL [Concomitant]
     Active Substance: METRONIDAZOLE\METRONIDAZOLE HYDROCHLORIDE
     Indication: Fungal infection
     Dosage: FREQUENCY TEXT: NOT PROVIDED
     Route: 065
     Dates: start: 201406

REACTIONS (3)
  - Exposure during pregnancy [Recovered/Resolved]
  - Occupational exposure to product [Unknown]
  - Normal newborn [Unknown]

NARRATIVE: CASE EVENT DATE: 20140930
